FAERS Safety Report 18556464 (Version 1)
Quarter: 2020Q4

REPORT INFORMATION
  Report Type: Spontaneous
  Country: ES (occurrence: ES)
  Receive Date: 20201128
  Receipt Date: 20201128
  Transmission Date: 20210114
  Serious: Yes (Disabling, Other)
  Sender: FDA-Public Use
  Company Number: ES-JNJFOC-20201150707

PATIENT
  Sex: Male

DRUGS (2)
  1. TRANSTEC UNK [Suspect]
     Active Substance: BUPRENORPHINE
     Indication: TUMOUR PAIN
     Dosage: UNK UNK, EVERY 3 DAYS
     Route: 062
  2. TRAMADOL HYDROCHLORIDE. [Suspect]
     Active Substance: TRAMADOL HYDROCHLORIDE
     Indication: PAIN
     Dosage: UNK UNK, AS NEEDED
     Route: 065

REACTIONS (12)
  - Negative thoughts [Not Recovered/Not Resolved]
  - Fatigue [Not Recovered/Not Resolved]
  - Product use issue [Recovered/Resolved]
  - Somnolence [Not Recovered/Not Resolved]
  - Insomnia [Not Recovered/Not Resolved]
  - Intercostal neuralgia [Unknown]
  - Irritability [Not Recovered/Not Resolved]
  - Suicidal ideation [Unknown]
  - Amnesia [Not Recovered/Not Resolved]
  - Personality disorder [Not Recovered/Not Resolved]
  - Mood altered [Not Recovered/Not Resolved]
  - Anxiety disorder [Not Recovered/Not Resolved]
